FAERS Safety Report 9377085 (Version 1)
Quarter: 2013Q3

REPORT INFORMATION
  Report Type: Spontaneous
  Country: US (occurrence: US)
  Receive Date: 20130701
  Receipt Date: 20130701
  Transmission Date: 20140515
  Serious: No
  Sender: FDA-Public Use
  Company Number: US-009507513-1306USA013945

PATIENT
  Sex: Female

DRUGS (2)
  1. COSOPT PF [Suspect]
     Indication: GLAUCOMA
     Dosage: 2 GTT, BID
     Route: 047
     Dates: start: 201201
  2. RESTASIS [Concomitant]

REACTIONS (3)
  - Ocular discomfort [Recovering/Resolving]
  - Eye pain [Recovering/Resolving]
  - Product quality issue [Unknown]
